FAERS Safety Report 22318586 (Version 2)
Quarter: 2025Q3

REPORT INFORMATION
  Report Type: Spontaneous
  Country: US (occurrence: US)
  Receive Date: 20230515
  Receipt Date: 20250708
  Transmission Date: 20251021
  Serious: No
  Sender: SANOFI AVENTIS
  Company Number: US-SA-SAC20230510001068

PATIENT
  Sex: Female

DRUGS (19)
  1. DUPIXENT [Suspect]
     Active Substance: DUPILUMAB
     Indication: Dermatitis atopic
     Route: 058
     Dates: start: 20230503
  2. IMITREX [Concomitant]
     Active Substance: SUMATRIPTAN SUCCINATE
     Indication: Headache
  3. MAXALT [Concomitant]
     Active Substance: RIZATRIPTAN BENZOATE
     Indication: Headache
  4. SUMATRIPTAN [Concomitant]
     Active Substance: SUMATRIPTAN
     Indication: Seizure
  5. VITAMIN B COMPLEX [Concomitant]
     Active Substance: CYANOCOBALAMIN\DEXPANTHENOL\NIACINAMIDE\PYRIDOXINE HYDROCHLORIDE\RIBOFLAVIN 5^-PHOSPHATE SODIUM\THIA
  6. GABAPENTIN [Concomitant]
     Active Substance: GABAPENTIN
  7. GABAPENTIN [Concomitant]
     Active Substance: GABAPENTIN
  8. LEVOTHYROXINE [Concomitant]
     Active Substance: LEVOTHYROXINE
  9. ALBUTEROL SULFATE [Concomitant]
     Active Substance: ALBUTEROL SULFATE
  10. GABAPENTIN [Concomitant]
     Active Substance: GABAPENTIN
  11. MONTELUKAST [Concomitant]
     Active Substance: MONTELUKAST
  12. NAYZILAM [Concomitant]
     Active Substance: MIDAZOLAM
  13. OXCARBAZEPINE [Concomitant]
     Active Substance: OXCARBAZEPINE
  14. OXYBUTYNIN [Concomitant]
     Active Substance: OXYBUTYNIN
  15. TACROLIMUS [Concomitant]
     Active Substance: TACROLIMUS
  16. VITAMIN D NOS [Concomitant]
     Active Substance: CHOLECALCIFEROL\ERGOCALCIFEROL
  17. XCOPRI [Concomitant]
     Active Substance: CENOBAMATE
  18. ZYRTEC [Concomitant]
     Active Substance: CETIRIZINE HYDROCHLORIDE
  19. DICLOFENAC [Concomitant]
     Active Substance: DICLOFENAC

REACTIONS (1)
  - Injection site pain [Unknown]
